FAERS Safety Report 14380572 (Version 1)
Quarter: 2018Q1

REPORT INFORMATION
  Report Type: Spontaneous
  Country: GB (occurrence: TH)
  Receive Date: 20180112
  Receipt Date: 20180112
  Transmission Date: 20180509
  Serious: Yes (Other)
  Sender: FDA-Public Use
  Company Number: GB-PFIZER INC-2018010523

PATIENT
  Age: 27 Year
  Sex: Male

DRUGS (1)
  1. VIAGRA [Suspect]
     Active Substance: SILDENAFIL CITRATE
     Dosage: UNK

REACTIONS (4)
  - Loss of consciousness [Unknown]
  - Intentional overdose [Unknown]
  - Abnormal behaviour [Unknown]
  - Aggression [Unknown]

NARRATIVE: CASE EVENT DATE: 20180104
